FAERS Safety Report 10343481 (Version 1)
Quarter: 2014Q3

REPORT INFORMATION
  Report Type: Spontaneous
  Country: CH (occurrence: CH)
  Receive Date: 20140725
  Receipt Date: 20140725
  Transmission Date: 20150326
  Serious: Yes (Life-Threatening, Hospitalization)
  Sender: FDA-Public Use
  Company Number: CH-009507513-1407CHE011215

PATIENT
  Age: 20 Year
  Sex: Female
  Weight: 39 kg

DRUGS (49)
  1. TAZOBAC [Suspect]
     Active Substance: PIPERACILLIN SODIUM\TAZOBACTAM SODIUM
     Dosage: VIAL, ONE MORE DOSE
     Route: 042
     Dates: start: 20140411, end: 20140411
  2. AMBISOME [Suspect]
     Active Substance: AMPHOTERICIN B
     Indication: PNEUMONIA FUNGAL
     Dosage: INFUSION AMPOULES, DRY VIALS/ BOTTLES
     Route: 042
     Dates: start: 20140307, end: 20140404
  3. MERONEM [Suspect]
     Active Substance: MEROPENEM
     Indication: FEBRILE NEUTROPENIA
     Dosage: AMPOULES
     Route: 042
     Dates: start: 20140312, end: 20140402
  4. LASIX [Suspect]
     Active Substance: FUROSEMIDE
     Indication: OEDEMA PERIPHERAL
     Dosage: UNK
     Route: 042
     Dates: start: 20140322, end: 201404
  5. MEPERIDINE HYDROCHLORIDE. [Concomitant]
     Active Substance: MEPERIDINE HYDROCHLORIDE
  6. BEPANTHEN (DEXPANTHENOL) [Concomitant]
  7. NOVALGIN (DIPYRONE) [Suspect]
     Active Substance: DIPYRONE
     Dosage: UNK
     Route: 042
  8. TAZOBAC [Suspect]
     Active Substance: PIPERACILLIN SODIUM\TAZOBACTAM SODIUM
     Indication: FEBRILE NEUTROPENIA
     Dosage: VIALS
     Route: 042
     Dates: start: 20140402, end: 20140408
  9. ROCEPHIN [Suspect]
     Active Substance: CEFTRIAXONE SODIUM
     Indication: STAPHYLOCOCCAL SEPSIS
     Dosage: AMPOULES, ONE DOSE
     Route: 041
     Dates: start: 20140303, end: 20140303
  10. FRAGMIN [Suspect]
     Active Substance: DALTEPARIN SODIUM
     Indication: THROMBOSIS PROPHYLAXIS
     Dosage: VIALS, 5000 IU ONCE DAILY
     Route: 058
     Dates: start: 20140331, end: 20140410
  11. PERFALGAN [Suspect]
     Active Substance: ACETAMINOPHEN
     Indication: PYREXIA
     Dosage: INFUSION AMPOULES, BAGS
     Route: 041
     Dates: start: 201403, end: 201404
  12. VFEND [Suspect]
     Active Substance: VORICONAZOLE
     Indication: PNEUMONIA FUNGAL
     Dosage: UNK
     Route: 041
     Dates: start: 20140314, end: 20140503
  13. VANCOCIN [Suspect]
     Active Substance: VANCOMYCIN HYDROCHLORIDE
     Indication: FEBRILE NEUTROPENIA
     Dosage: VIALS
     Route: 042
     Dates: start: 20140306, end: 20140307
  14. PANTOZOL [Suspect]
     Active Substance: PANTOPRAZOLE SODIUM
     Indication: GASTRITIS PROPHYLAXIS
     Dosage: UNK
     Route: 065
     Dates: start: 20140412, end: 20140505
  15. URSOFALK [Concomitant]
     Active Substance: URSODIOL
  16. TEMESTA [Concomitant]
     Active Substance: LORAZEPAM
     Route: 060
  17. VITALIPID [Concomitant]
  18. CEFEPIME [Suspect]
     Active Substance: CEFEPIME\CEFEPIME HYDROCHLORIDE
     Indication: STAPHYLOCOCCAL SEPSIS
     Dosage: UNK
     Route: 041
     Dates: start: 20140304, end: 20140312
  19. DALACIN C [Suspect]
     Active Substance: CLINDAMYCIN PHOSPHATE
     Indication: PRODUCT USED FOR UNKNOWN INDICATION
     Dosage: POWDERS, GRANULES
     Route: 041
     Dates: start: 20140416, end: 20140423
  20. FLAGYL [Suspect]
     Active Substance: METRONIDAZOLE\METRONIDAZOLE HYDROCHLORIDE
     Dosage: UNK
     Route: 041
     Dates: start: 20140412, end: 20140415
  21. MORPHINE [Concomitant]
     Active Substance: MORPHINE
  22. NOVALGIN (DIPYRONE) [Suspect]
     Active Substance: DIPYRONE
     Indication: NEPHROSTOMY
     Dosage: 500 MG DAILY
     Route: 048
     Dates: start: 20131201, end: 201402
  23. OBRACIN [Suspect]
     Active Substance: TOBRAMYCIN
     Indication: FEBRILE NEUTROPENIA
     Dosage: VIALS
     Route: 041
     Dates: start: 20140303, end: 20140305
  24. EXCIPIAL U [Suspect]
     Active Substance: UREA
     Indication: RASH GENERALISED
     Dosage: 1 DF AS NECESSARY
     Route: 061
     Dates: start: 20140324, end: 201404
  25. TRICLOSAN. [Suspect]
     Active Substance: TRICLOSAN
     Indication: RASH GENERALISED
     Dosage: LIQUIDS, SOAPS/WASNES, 1 DF AS NECESSARY
     Route: 061
     Dates: start: 20140304, end: 201404
  26. ADDAMEL [Concomitant]
  27. NOROXIN [Suspect]
     Active Substance: NORFLOXACIN
     Indication: PYELONEPHRITIS
     Dosage: UNK
     Route: 048
     Dates: start: 20140220, end: 20140224
  28. CLEXANE (SURICLONE) [Suspect]
     Active Substance: ENOXAPARIN SODIUM
     Dosage: VIALS, 40 MG, 1 PER 1 DAY
     Route: 058
     Dates: start: 20140324, end: 20140330
  29. DAFALGAN [Suspect]
     Active Substance: ACETAMINOPHEN
     Indication: PYREXIA
     Dosage: UNK
     Route: 048
     Dates: start: 20140306, end: 201404
  30. FLAGYL [Suspect]
     Active Substance: METRONIDAZOLE\METRONIDAZOLE HYDROCHLORIDE
     Indication: DIARRHOEA
     Dosage: UNK
     Route: 041
     Dates: start: 20140309, end: 20140326
  31. VANCOCIN [Suspect]
     Active Substance: VANCOMYCIN HYDROCHLORIDE
     Dosage: VIALS
     Route: 042
     Dates: start: 20140326, end: 201404
  32. ETHINYL ESTRADIOL (+) LEVONORGESTREL [Concomitant]
     Active Substance: ETHINYL ESTRADIOL\LEVONORGESTREL
  33. NEUPOGEN [Concomitant]
     Active Substance: FILGRASTIM
  34. SOLU-MEDROL [Concomitant]
     Active Substance: METHYLPREDNISOLONE SODIUM SUCCINATE
     Dosage: INFUSION AMPOULES
  35. ZOFRAN [Concomitant]
     Active Substance: ONDANSETRON HYDROCHLORIDE
  36. IMODIUM [Concomitant]
     Active Substance: LOPERAMIDE HYDROCHLORIDE
  37. FLUIMUCIL [Concomitant]
     Active Substance: ACETYLCYSTEINE
  38. FENISTIL [Concomitant]
     Active Substance: DIMETHINDENE
  39. CEFEPIME [Suspect]
     Active Substance: CEFEPIME\CEFEPIME HYDROCHLORIDE
     Dosage: UNK
     Route: 041
     Dates: start: 20140405, end: 20140416
  40. SMOFKABIVEN [Concomitant]
     Active Substance: UNSPECIFIED INGREDIENT
  41. CLEXANE (SURICLONE) [Suspect]
     Active Substance: ENOXAPARIN SODIUM
     Indication: THROMBOSIS PROPHYLAXIS
     Dosage: VIALS, 40 MG, 1 PER 1 DAY
     Route: 058
     Dates: start: 20140307, end: 20140312
  42. CLEXANE (SURICLONE) [Suspect]
     Active Substance: ENOXAPARIN SODIUM
     Dosage: 40 MG, UNK
     Route: 058
     Dates: start: 20140410, end: 20140505
  43. TAVEGIL [Concomitant]
     Active Substance: CLEMASTINE FUMARATE
  44. NOVALGIN (DIPYRONE) [Suspect]
     Active Substance: DIPYRONE
     Dosage: UNK
     Route: 048
     Dates: start: 20140304, end: 20140305
  45. NEOCITRAN (ACETAMINOPHEN) [Suspect]
     Active Substance: ACETANILIDE\ASCORBIC ACID\PHENIRAMINE MALEATE\PHENYLEPHRINE HYDROCHLORIDE
     Indication: PRODUCT USED FOR UNKNOWN INDICATION
     Dosage: UNK
     Route: 048
     Dates: start: 201402, end: 201402
  46. ROCEPHIN [Suspect]
     Active Substance: CEFTRIAXONE SODIUM
     Dosage: AMPOULES, AGAIN
     Route: 041
     Dates: start: 20140412, end: 20140415
  47. XYZAL [Concomitant]
     Active Substance: LEVOCETIRIZINE DIHYDROCHLORIDE
  48. MOTILIUM [Concomitant]
     Active Substance: DOMPERIDONE
     Dosage: TABLETS, TONGUE SOLUBLE
  49. DERMOVATE [Concomitant]
     Active Substance: CLOBETASOL

REACTIONS (16)
  - Pancytopenia [Recovered/Resolved]
  - Drug reaction with eosinophilia and systemic symptoms [Recovered/Resolved]
  - Dyspnoea [Recovered/Resolved]
  - Bone marrow toxicity [None]
  - Rash maculo-papular [Recovered/Resolved]
  - Lymphadenopathy [Recovered/Resolved]
  - Proteinuria [None]
  - Staphylococcus test positive [None]
  - Shock [Recovered/Resolved]
  - Renal tubular disorder [None]
  - Febrile bone marrow aplasia [Recovered/Resolved]
  - Hepatosplenomegaly [None]
  - Hepatitis cholestatic [None]
  - Dermatitis exfoliative [Recovered/Resolved]
  - Encephalopathy [None]
  - Myelofibrosis [None]

NARRATIVE: CASE EVENT DATE: 201403
